FAERS Safety Report 15980541 (Version 1)
Quarter: 2019Q1

REPORT INFORMATION
  Report Type: Report from Study
  Country: JP (occurrence: JP)
  Receive Date: 20190219
  Receipt Date: 20190219
  Transmission Date: 20190418
  Serious: Yes (Other)
  Sender: FDA-Public Use
  Company Number: JP-MYLANLABS-2019M1015217

PATIENT
  Sex: Female

DRUGS (1)
  1. METHOTREXATE. [Suspect]
     Active Substance: METHOTREXATE
     Indication: GESTATIONAL TROPHOBLASTIC TUMOUR
     Dosage: LOW-DOSE; FOR 5 DAYS, REPEATED EVERY 10-14 DAYS UNTIL THE SERUM HUMAN CHORIONIC GONADOTROPIN LEVE...
     Route: 030

REACTIONS (2)
  - Drug resistance [Unknown]
  - Treatment failure [Unknown]
